FAERS Safety Report 6505500-6 (Version None)
Quarter: 2009Q4

REPORT INFORMATION
  Report Type: 
  Country: None (occurrence: None)
  Receive Date: 20091218
  Receipt Date: 20091214
  Transmission Date: 20100525
  Serious: Yes (Hospitalization)
  Sender: FDA-Public Use
  Company Number: ES-PFIZER INC-2009309733

PATIENT
  Age: 84 Year
  Sex: Female

DRUGS (6)
  1. LYRICA [Suspect]
     Indication: POLYNEUROPATHY
     Dosage: 75 MG, 1X/DAY
     Route: 048
  2. TRAMADOL HYDROCHLORIDE AND ACETAMINOPHEN [Interacting]
     Indication: CONTUSION
     Dosage: UNK
     Route: 048
     Dates: start: 20090126, end: 20090129
  3. ESCITALOPRAM [Interacting]
     Dosage: 10 MG, 1X/DAY
     Route: 048
  4. DIAZEPAM [Interacting]
     Dosage: UNK
     Route: 048
     Dates: end: 20090129
  5. OMEPRAZOLE [Concomitant]
     Dosage: 20 MG, 1X/DAY
     Route: 048
  6. TENSOGRADAL [Concomitant]
     Indication: HYPERTENSION
     Dosage: 20 MG, 1X/DAY
     Route: 048

REACTIONS (2)
  - DEPRESSED LEVEL OF CONSCIOUSNESS [None]
  - DRUG INTERACTION [None]
